FAERS Safety Report 9124926 (Version 1)
Quarter: 2013Q1

REPORT INFORMATION
  Report Type: Spontaneous
  Country: JP (occurrence: JP)
  Receive Date: 20130121
  Receipt Date: 20130121
  Transmission Date: 20140127
  Serious: Yes (Other)
  Sender: FDA-Public Use
  Company Number: JP-VERTEX PHARMACEUTICALS INC.-2013-000826

PATIENT
  Age: 58 Year
  Sex: Male

DRUGS (3)
  1. TELAVIC [Suspect]
     Dosage: 2250 MG, QD
     Route: 048
     Dates: start: 20121101, end: 20130112
  2. REBETOL [Suspect]
     Dosage: 800 MG, QD
     Route: 048
     Dates: start: 20021101
  3. PEGINTRON [Suspect]
     Dosage: 1.5 ?G/KG, UNK
     Route: 058
     Dates: start: 20121101

REACTIONS (1)
  - Deafness [Recovered/Resolved]
